FAERS Safety Report 12302364 (Version 2)
Quarter: 2016Q2

REPORT INFORMATION
  Report Type: Report from Study
  Country: US (occurrence: US)
  Receive Date: 20160425
  Receipt Date: 20160502
  Transmission Date: 20160815
  Serious: Yes (Hospitalization)
  Sender: FDA-Public Use
  Company Number: US-PURDUE-USA-2016-0129950

PATIENT
  Age: 42 Year
  Sex: Female

DRUGS (4)
  1. OXYCONTIN [Suspect]
     Active Substance: OXYCODONE HYDROCHLORIDE
     Indication: SYSTEMIC LUPUS ERYTHEMATOSUS
     Dosage: 30 MG, Q8H
     Route: 048
  2. OXYCONTIN [Suspect]
     Active Substance: OXYCODONE HYDROCHLORIDE
     Indication: INTERVERTEBRAL DISC DEGENERATION
     Dosage: 30 MG, Q12H
     Route: 048
     Dates: start: 201602
  3. OXYCONTIN [Suspect]
     Active Substance: OXYCODONE HYDROCHLORIDE
     Indication: PAIN
     Dosage: UNK
     Route: 048
     Dates: start: 201508
  4. OXYCONTIN [Suspect]
     Active Substance: OXYCODONE HYDROCHLORIDE
     Indication: BURSITIS
     Dosage: 30 MG, Q12H
     Route: 048
     Dates: start: 201603

REACTIONS (8)
  - Kidney infection [Unknown]
  - Inadequate analgesia [Not Recovered/Not Resolved]
  - Muscular weakness [Unknown]
  - Dyspepsia [Unknown]
  - Hypophagia [Unknown]
  - Pain [Unknown]
  - Abdominal pain [Unknown]
  - Constipation [Unknown]

NARRATIVE: CASE EVENT DATE: 201512
